FAERS Safety Report 26153120 (Version 1)
Quarter: 2025Q4

REPORT INFORMATION
  Report Type: Report from Study
  Country: AR (occurrence: AR)
  Receive Date: 20251214
  Receipt Date: 20251214
  Transmission Date: 20260117
  Serious: Yes (Other)
  Sender: MERCK KGAA
  Company Number: AR-Merck Healthcare KGaA-2025061463

PATIENT
  Age: 49 Year
  Sex: Female

DRUGS (3)
  1. MAVENCLAD [Suspect]
     Active Substance: CLADRIBINE
     Indication: Multiple sclerosis
     Dosage: YEAR ONE THERAPY
  2. DALFAMPRIDINE [Concomitant]
     Active Substance: DALFAMPRIDINE
     Indication: Product used for unknown indication
     Dosage: EVERY 12 HOURS
  3. LEVOTHYROXINE [Concomitant]
     Active Substance: LEVOTHYROXINE
     Indication: Hypothyroidism

REACTIONS (10)
  - Hepatitis toxic [Recovering/Resolving]
  - Haematocrit decreased [Unknown]
  - Haemoglobin decreased [Unknown]
  - Blood creatinine decreased [Unknown]
  - White blood cell count decreased [Unknown]
  - Mean cell volume decreased [Unknown]
  - Transferrin saturation decreased [Unknown]
  - Alpha 1 globulin decreased [Unknown]
  - Beta globulin decreased [Unknown]
  - Cellulitis [Unknown]

NARRATIVE: CASE EVENT DATE: 20250619
